FAERS Safety Report 6838023-5 (Version None)
Quarter: 2010Q3

REPORT INFORMATION
  Report Type: 
  Country: None (occurrence: None)
  Receive Date: 20100713
  Receipt Date: 20070531
  Transmission Date: 20110219
  Serious: No
  Sender: FDA-Public Use
  Company Number: US-PFIZER INC-2007045268

PATIENT
  Sex: Male
  Weight: 70.8 kg

DRUGS (4)
  1. CHANTIX [Suspect]
     Indication: SMOKING CESSATION THERAPY
     Dates: start: 20070526
  2. ADVAIR DISKUS 100/50 [Concomitant]
  3. ALBUTEROL [Concomitant]
  4. CELEBREX [Concomitant]

REACTIONS (2)
  - INSOMNIA [None]
  - RESTLESSNESS [None]
